FAERS Safety Report 5767148-0 (Version None)
Quarter: 2008Q2

REPORT INFORMATION
  Report Type: 
  Country: None (occurrence: None)
  Receive Date: 20080612
  Receipt Date: 20080606
  Transmission Date: 20081010
  Serious: Yes (Hospitalization, Other)
  Sender: FDA-Public Use
  Company Number: HQWYE280919JUL05

PATIENT
  Sex: Female
  Weight: 55.39 kg

DRUGS (6)
  1. PREMPRO [Suspect]
  2. MEDROXYPROGESTERONE ACETATE [Suspect]
  3. PROVERA [Suspect]
  4. ESTRACE [Suspect]
  5. PREMARIN [Suspect]
  6. FEMHRT [Suspect]

REACTIONS (1)
  - BREAST CANCER METASTATIC [None]
